FAERS Safety Report 13901260 (Version 2)
Quarter: 2017Q3

REPORT INFORMATION
  Report Type: Report from Study
  Country: FR (occurrence: FR)
  Receive Date: 20170824
  Receipt Date: 20170915
  Transmission Date: 20171127
  Serious: Yes (Other)
  Sender: FDA-Public Use
  Company Number: FR-SUN PHARMACEUTICAL INDUSTRIES LTD-2017R1-148191

PATIENT
  Age: 61 Year
  Sex: Female

DRUGS (2)
  1. DOXORUBICIN [Suspect]
     Active Substance: DOXORUBICIN
     Indication: PANCREATIC NEUROENDOCRINE TUMOUR
     Dosage: CYCLICAL
     Route: 065
  2. STREPTOZOTOCIN [Suspect]
     Active Substance: STREPTOZOCIN
     Indication: PANCREATIC NEUROENDOCRINE TUMOUR
     Dosage: CYCLICAL
     Route: 065

REACTIONS (3)
  - Nephropathy toxic [Unknown]
  - Chronic kidney disease [Unknown]
  - Toxicity to various agents [Unknown]
